FAERS Safety Report 6765793-7 (Version None)
Quarter: 2010Q2

REPORT INFORMATION
  Report Type: 
  Country: None (occurrence: None)
  Receive Date: 20100611
  Receipt Date: 20100602
  Transmission Date: 20101027
  Serious: Yes (Hospitalization)
  Sender: FDA-Public Use
  Company Number: JP-ROCHE-704949

PATIENT
  Sex: Female

DRUGS (3)
  1. ACTEMRA [Suspect]
     Indication: RHEUMATOID ARTHRITIS
     Dosage: NOTE: DOSAGE IS UNCERTAIN.
     Route: 041
     Dates: start: 20100311
  2. MEROPENEM [Concomitant]
     Dosage: DRUG REPRTED AS MEROPENEM TRIHYDRATE
     Route: 042
  3. VANCOMYCIN [Concomitant]
     Dosage: DRUG REPORTED AS VANCOMYCIN HYDROCHLORIDE.

REACTIONS (1)
  - PNEUMONIA [None]
